FAERS Safety Report 7570781-7 (Version None)
Quarter: 2011Q2

REPORT INFORMATION
  Report Type: 
  Country: None (occurrence: None)
  Receive Date: 20110624
  Receipt Date: 20110527
  Transmission Date: 20111010
  Serious: No
  Sender: FDA-Public Use
  Company Number: US-ALLERGAN-1106638US

PATIENT
  Age: 69 Year
  Sex: Female

DRUGS (1)
  1. LATISSE [Suspect]
     Indication: PRODUCT USED FOR UNKNOWN INDICATION
     Dosage: 1 GTT, SINGLE
     Route: 061
     Dates: start: 20110502, end: 20110503

REACTIONS (3)
  - HYPERSENSITIVITY [None]
  - EYE SWELLING [None]
  - EYE DISCHARGE [None]
